FAERS Safety Report 4700212-3 (Version None)
Quarter: 2005Q2

REPORT INFORMATION
  Report Type: 
  Country: None (occurrence: None)
  Receive Date: 20050623
  Receipt Date: 20050615
  Transmission Date: 20051028
  Serious: Yes (Hospitalization)
  Sender: FDA-Public Use
  Company Number: TPA2005A00680

PATIENT
  Age: 67 Year
  Sex: Female
  Weight: 111.1313 kg

DRUGS (7)
  1. ACTOS [Suspect]
     Indication: DIABETES MELLITUS NON-INSULIN-DEPENDENT
     Dosage: 30 MG, 1 IN 1 D, PER ORAL
     Route: 048
     Dates: start: 20020615
  2. COUMADIN (WARFARIN SODIUM) (5 MILLIGRAM) [Concomitant]
  3. ENALAPRIL (ENALAPRIL) (20 MILLIGRAM) [Concomitant]
  4. METOPROLOL (METOPROLOL) ( 20 MILLIGRAM) [Concomitant]
  5. HYDROCHLOROTHIAZIDE (HYDROCHLOROTHIAZIDE) (12 MILLIGRAM) [Concomitant]
  6. ARIMIDEX [Concomitant]
  7. HYDROXYZINE [Concomitant]

REACTIONS (5)
  - BACK PAIN [None]
  - BREAST CANCER FEMALE [None]
  - NEPHROLITHIASIS [None]
  - OEDEMA PERIPHERAL [None]
  - THROMBOSIS [None]
